FAERS Safety Report 9292504 (Version 1)
Quarter: 2013Q2

REPORT INFORMATION
  Report Type: Spontaneous
  Country: DE (occurrence: DE)
  Receive Date: 20130516
  Receipt Date: 20130516
  Transmission Date: 20140414
  Serious: Yes (Other)
  Sender: FDA-Public Use
  Company Number: DE-PFIZER INC-2013106947

PATIENT
  Sex: Male

DRUGS (1)
  1. PANTOZOL [Suspect]
     Indication: GASTRITIS
     Dosage: 40 MG, DAILY
     Route: 048

REACTIONS (3)
  - Basal cell carcinoma [Unknown]
  - Hyperkeratosis [Unknown]
  - Gastrointestinal disorder [Unknown]
